FAERS Safety Report 6723128-X (Version None)
Quarter: 2010Q2

REPORT INFORMATION
  Report Type: 
  Country: None (occurrence: None)
  Receive Date: 20100513
  Receipt Date: 20100503
  Transmission Date: 20101027
  Serious: Yes (Hospitalization, Other)
  Sender: FDA-Public Use
  Company Number: US-BAYER-201014310NA

PATIENT
  Age: 32 Year
  Sex: Female
  Weight: 92 kg

DRUGS (5)
  1. YAZ [Suspect]
     Indication: DRUG USE FOR UNKNOWN INDICATION
     Route: 048
     Dates: start: 20071127, end: 20080204
  2. PREDNISONE [Concomitant]
     Dates: start: 20080131
  3. IBUPROFEN [Concomitant]
     Indication: PAIN
     Dosage: UNIT DOSE: 800 MG
     Dates: start: 20070901, end: 20080426
  4. HYDROCODONE BITARTRATE [Concomitant]
     Indication: PAIN
     Dosage: 5/500 MG- 3 TABS/DAY
     Route: 048
     Dates: start: 20080129
  5. FERROUS SULFATE TAB [Concomitant]
     Indication: ANAEMIA
     Dates: start: 20080201

REACTIONS (2)
  - DEEP VEIN THROMBOSIS [None]
  - PAIN [None]
